FAERS Safety Report 24279497 (Version 3)
Quarter: 2024Q3

REPORT INFORMATION
  Report Type: Report from Study
  Country: US (occurrence: US)
  Receive Date: 20240903
  Receipt Date: 20240920
  Transmission Date: 20241017
  Serious: Yes (Hospitalization, Other)
  Sender: ABBVIE
  Company Number: US-ABBVIE-5901990

PATIENT
  Age: 61 Year
  Sex: Male

DRUGS (1)
  1. SKYRIZI [Suspect]
     Active Substance: RISANKIZUMAB-RZAA
     Indication: Psoriatic arthropathy
     Dosage: FORM STRENGTH: 150MG
     Route: 058
     Dates: start: 202401, end: 202405

REACTIONS (3)
  - Staphylococcal infection [Recovering/Resolving]
  - Lymphoma [Not Recovered/Not Resolved]
  - Lymphadenectomy [Unknown]

NARRATIVE: CASE EVENT DATE: 20240731
